FAERS Safety Report 7618631-4 (Version None)
Quarter: 2011Q3

REPORT INFORMATION
  Report Type: 
  Country: None (occurrence: None)
  Receive Date: 20110718
  Receipt Date: 20110712
  Transmission Date: 20111222
  Serious: Yes (Other)
  Sender: FDA-Public Use
  Company Number: FR-SANOFI-AVENTIS-2011SA041755

PATIENT
  Age: 58 Year
  Sex: Male
  Weight: 95 kg

DRUGS (4)
  1. ATACAND [Concomitant]
     Route: 048
     Dates: start: 20090526
  2. ASPIRIN [Concomitant]
     Route: 048
     Dates: start: 20090526
  3. MULTAQ [Suspect]
     Route: 048
     Dates: start: 20101201, end: 20110701
  4. CORDARONE [Suspect]
     Route: 048
     Dates: start: 20091101, end: 20101201

REACTIONS (1)
  - HYPERTHYROIDISM [None]
